FAERS Safety Report 7268206-4 (Version None)
Quarter: 2011Q1

REPORT INFORMATION
  Report Type: 
  Country: None (occurrence: None)
  Receive Date: 20110201
  Receipt Date: 20110125
  Transmission Date: 20110831
  Serious: Yes (Other)
  Sender: FDA-Public Use
  Company Number: US-PFIZER INC-US-WYE-H18386810

PATIENT
  Sex: Female
  Weight: 81.633 kg

DRUGS (3)
  1. ADVAIR [Concomitant]
  2. PRISTIQ [Suspect]
     Indication: MAJOR DEPRESSION
  3. PRISTIQ [Suspect]
     Indication: BIPOLAR DISORDER
     Dosage: 50 MG, 1X/DAY
     Route: 048
     Dates: start: 20101018

REACTIONS (2)
  - FEELING ABNORMAL [None]
  - HYPERTENSION [None]
